FAERS Safety Report 7986303-2 (Version None)
Quarter: 2011Q4

REPORT INFORMATION
  Report Type: 
  Country: None (occurrence: None)
  Receive Date: 20111216
  Receipt Date: 20110126
  Transmission Date: 20120403
  Serious: No
  Sender: FDA-Public Use
  Company Number: US-BRISTOL-MYERS SQUIBB COMPANY-15511967

PATIENT
  Age: 63 Year
  Sex: Female

DRUGS (6)
  1. ABILIFY [Suspect]
     Dosage: INCREASED TO 15MG IN OCT
     Dates: start: 20100701
  2. GLIPIZIDE [Concomitant]
  3. CRESTOR [Concomitant]
  4. PREMARIN [Concomitant]
  5. FLUOXETINE [Concomitant]
  6. DEPAKOTE [Concomitant]

REACTIONS (1)
  - TREMOR [None]
